FAERS Safety Report 21143740 (Version 1)
Quarter: 2022Q3

REPORT INFORMATION
  Report Type: Spontaneous
  Country: US (occurrence: US)
  Receive Date: 20220728
  Receipt Date: 20220728
  Transmission Date: 20221027
  Serious: No
  Sender: FDA-Public Use
  Company Number: US-BAUSCH-BL-2022-018437

PATIENT
  Age: 92 Year
  Sex: Female

DRUGS (2)
  1. LATANOPROST [Suspect]
     Active Substance: LATANOPROST
     Indication: Intraocular pressure increased
     Dosage: BEDTIME EVERY DAY FOR 3 MONTHS
     Route: 047
     Dates: start: 20220502, end: 2022
  2. LATANOPROST [Suspect]
     Active Substance: LATANOPROST
     Route: 047
     Dates: start: 20220705, end: 20220714

REACTIONS (4)
  - Intraocular pressure increased [Unknown]
  - Condition aggravated [Unknown]
  - Corneal thinning [Unknown]
  - Intentional product use issue [Unknown]

NARRATIVE: CASE EVENT DATE: 20220101
